FAERS Safety Report 6407760-9 (Version None)
Quarter: 2009Q4

REPORT INFORMATION
  Report Type: 
  Country: None (occurrence: None)
  Receive Date: 20091015
  Receipt Date: 20091001
  Transmission Date: 20100525
  Serious: Yes (Other)
  Sender: FDA-Public Use
  Company Number: GB-DEXPHARM-20091580

PATIENT
  Age: 37 Year
  Sex: Female

DRUGS (2)
  1. CORSODYL ACTIVE SUBSTANCES: CHLORHEXIDINE GLUCONATE [Suspect]
     Indication: PERIODONTITIS
     Dosage: TOPICAL
     Route: 061
  2. BACLOFEN [Concomitant]

REACTIONS (2)
  - ANAPHYLACTIC REACTION [None]
  - ANGIOEDEMA [None]
